FAERS Safety Report 25396317 (Version 1)
Quarter: 2025Q2

REPORT INFORMATION
  Report Type: Spontaneous
  Country: US (occurrence: US)
  Receive Date: 20250604
  Receipt Date: 20250604
  Transmission Date: 20250716
  Serious: Yes (Other)
  Sender: KYOWA
  Company Number: US-KYOWAKIRIN-2025KK010428

PATIENT

DRUGS (1)
  1. NOURIANZ [Suspect]
     Active Substance: ISTRADEFYLLINE
     Indication: Parkinson^s disease
     Dosage: 40 MG, QD (TAKE 1 TABLET 40MG BY MOUTH DAILY)
     Route: 048
     Dates: start: 20230511

REACTIONS (3)
  - Choking [Unknown]
  - Condition aggravated [Unknown]
  - Product use issue [Unknown]
